FAERS Safety Report 5946952-X (Version None)
Quarter: 2008Q4

REPORT INFORMATION
  Report Type: 
  Country: None (occurrence: None)
  Receive Date: 20081110
  Receipt Date: 20081103
  Transmission Date: 20090506
  Serious: Yes (Hospitalization)
  Sender: FDA-Public Use
  Company Number: CA-AVENTIS-200815996EU

PATIENT
  Age: 32 Year
  Sex: Female

DRUGS (9)
  1. LOVENOX [Suspect]
     Indication: PULMONARY EMBOLISM
     Route: 058
     Dates: start: 20080818, end: 20080825
  2. LOVENOX [Suspect]
     Route: 058
     Dates: start: 20080929, end: 20081029
  3. LOVENOX [Suspect]
     Route: 058
     Dates: start: 20081030
  4. LOVENOX [Suspect]
     Route: 058
     Dates: start: 20080826, end: 20080922
  5. PRENATAL VITAMINS                  /01549301/ [Concomitant]
     Route: 048
     Dates: start: 20080825
  6. CALCIUM [Concomitant]
     Indication: OSTEOPOROSIS PROPHYLAXIS
     Route: 048
     Dates: start: 20080825
  7. VIT D [Concomitant]
     Indication: OSTEOPOROSIS PROPHYLAXIS
     Route: 048
     Dates: start: 20080825
  8. FLOVENT [Concomitant]
     Indication: RESPIRATORY DISORDER
     Route: 055
     Dates: start: 20080818
  9. VENTOLIN [Concomitant]
     Indication: RESPIRATORY DISORDER
     Route: 055
     Dates: start: 20080818

REACTIONS (4)
  - DRUG EXPOSURE DURING PREGNANCY [None]
  - PREMATURE SEPARATION OF PLACENTA [None]
  - RASH [None]
  - VAGINAL HAEMORRHAGE [None]
